FAERS Safety Report 9948309 (Version 2)
Quarter: 2014Q1

REPORT INFORMATION
  Report Type: Report from Study
  Country: US (occurrence: US)
  Receive Date: 20140303
  Receipt Date: 20140303
  Transmission Date: 20141002
  Serious: No
  Sender: FDA-Public Use
  Company Number: US-ABBVIE-12P-163-1007956-00

PATIENT
  Age: 41 Year
  Sex: Female

DRUGS (17)
  1. HUMIRA [Suspect]
     Indication: RHEUMATOID ARTHRITIS
     Route: 058
     Dates: start: 20121029, end: 201211
  2. HUMIRA [Suspect]
     Route: 058
     Dates: start: 20130205
  3. HUMIRA [Suspect]
     Route: 058
     Dates: start: 20130305
  4. METHOTREXATE [Concomitant]
     Indication: RHEUMATOID ARTHRITIS
     Dosage: 2.5 MG X 8 PILLS WEEKLY
  5. METHOTREXATE [Concomitant]
  6. GABAPENTIN [Concomitant]
     Indication: RHEUMATOID ARTHRITIS
     Dosage: EVERY P.M.
  7. PREDNISONE [Concomitant]
     Indication: RHEUMATOID ARTHRITIS
     Dosage: 2.5 MG DAILY
  8. FLUOXETINE [Concomitant]
     Indication: ANXIETY
     Dosage: 60 MG DAILY
  9. FLUOXETINE [Concomitant]
     Dosage: 40 MG DAILY
  10. FOLIC ACID [Concomitant]
     Indication: PRODUCT USED FOR UNKNOWN INDICATION
     Dosage: DAILY
  11. CELEBREX [Concomitant]
     Indication: RHEUMATOID ARTHRITIS
     Dosage: 200 MG DAILY
  12. PLAQUENIL [Concomitant]
     Indication: RHEUMATOID ARTHRITIS
     Dosage: 200 MG DAILY
  13. ATELVIA [Concomitant]
     Indication: MINERAL SUPPLEMENTATION
     Dosage: WEEKLY
  14. VITAMIN C [Concomitant]
     Indication: PRODUCT USED FOR UNKNOWN INDICATION
     Dosage: 1000 MG DAILY
  15. FISH OIL [Concomitant]
     Indication: PRODUCT USED FOR UNKNOWN INDICATION
  16. CALCIUM [Concomitant]
     Indication: PRODUCT USED FOR UNKNOWN INDICATION
     Dosage: 600 MG DAILY
  17. GLUCOSAMINE [Concomitant]
     Indication: PRODUCT USED FOR UNKNOWN INDICATION
     Dosage: 1500 MG DAILY

REACTIONS (8)
  - Drug dose omission [Unknown]
  - Nasopharyngitis [Not Recovered/Not Resolved]
  - Influenza like illness [Unknown]
  - Pyrexia [Unknown]
  - Sinus congestion [Unknown]
  - Cough [Unknown]
  - Injection site pain [Unknown]
  - Injection site bruising [Unknown]
